APPROVED DRUG PRODUCT: LISINOPRIL
Active Ingredient: LISINOPRIL
Strength: 10MG
Dosage Form/Route: TABLET;ORAL
Application: A078402 | Product #003 | TE Code: AB
Applicant: WOCKHARDT BIO AG
Approved: Apr 19, 2007 | RLD: No | RS: No | Type: RX